FAERS Safety Report 14995819 (Version 1)
Quarter: 2018Q2

REPORT INFORMATION
  Report Type: Spontaneous
  Country: US (occurrence: US)
  Receive Date: 20180611
  Receipt Date: 20180611
  Transmission Date: 20180711
  Serious: No
  Sender: FDA-Public Use
  Company Number: US-MYLANLABS-2018M1032872

PATIENT
  Age: 76 Year
  Sex: Female
  Weight: 86 kg

DRUGS (1)
  1. OMEPRAZOLE. [Suspect]
     Active Substance: OMEPRAZOLE
     Indication: BARRETT^S OESOPHAGUS
     Dosage: 20 MG, UNK
     Route: 048

REACTIONS (8)
  - Sleep disorder [Not Recovered/Not Resolved]
  - Arthralgia [Not Recovered/Not Resolved]
  - Antinuclear antibody increased [Not Recovered/Not Resolved]
  - Incorrect dose administered [Unknown]
  - Dyspnoea [Unknown]
  - Butterfly rash [Not Recovered/Not Resolved]
  - Stomatitis [Not Recovered/Not Resolved]
  - Malaise [Not Recovered/Not Resolved]

NARRATIVE: CASE EVENT DATE: 20180416
